FAERS Safety Report 5532165-2 (Version None)
Quarter: 2007Q4

REPORT INFORMATION
  Report Type: 
  Country: None (occurrence: None)
  Receive Date: 20071128
  Receipt Date: 20071113
  Transmission Date: 20080405
  Serious: Yes (Other)
  Sender: FDA-Public Use
  Company Number: L07-CAN-05390-01

PATIENT
  Age: 56 Year
  Sex: Female
  Weight: 68.9 kg

DRUGS (12)
  1. CITALOPRAM [Suspect]
     Dosage: 20 MG QD
  2. CITALOPRAM [Suspect]
     Dosage: 30 MG QD
     Dates: start: 20010112, end: 20050228
  3. CLOZAPINE [Suspect]
     Indication: SCHIZOPHRENIA, PARANOID TYPE
     Dosage: 500 MG QD
  4. CLOZAPINE [Suspect]
     Indication: SCHIZOPHRENIA, PARANOID TYPE
     Dosage: 700 MG QD
  5. CLOZAPINE [Suspect]
     Indication: SCHIZOPHRENIA, PARANOID TYPE
     Dosage: 400 MG QD
  6. CLOZAPINE [Suspect]
     Indication: SCHIZOPHRENIA, PARANOID TYPE
     Dosage: 700 MG QD
  7. CLOZAPINE [Suspect]
     Indication: SCHIZOPHRENIA, PARANOID TYPE
     Dosage: 400 MG QD
  8. CLOZAPINE [Suspect]
     Indication: SCHIZOPHRENIA, PARANOID TYPE
     Dosage: 600 MG
     Dates: start: 20010921, end: 20050228
  9. IBUPROFEN [Suspect]
     Dosage: 400 MG QD
  10. HALOPERIDOL [Suspect]
     Dosage: 3 MG QD
     Dates: start: 19971205, end: 20050228
  11. LORAZEPAM [Concomitant]
  12. LOXAPINE [Concomitant]

REACTIONS (14)
  - ARRHYTHMIA [None]
  - ASTHENIA [None]
  - ATONIC SEIZURES [None]
  - BALANCE DISORDER [None]
  - DROP ATTACKS [None]
  - DRUG INTERACTION [None]
  - DRUG LEVEL INCREASED [None]
  - EYE INJURY [None]
  - FALL [None]
  - GRAND MAL CONVULSION [None]
  - MUSCLE TWITCHING [None]
  - MYOCLONIC EPILEPSY [None]
  - MYOCLONUS [None]
  - SYNCOPE [None]
